FAERS Safety Report 23169769 (Version 2)
Quarter: 2024Q1

REPORT INFORMATION
  Report Type: Report from Study
  Country: US (occurrence: US)
  Receive Date: 20231110
  Receipt Date: 20240109
  Transmission Date: 20240410
  Serious: No
  Sender: FDA-Public Use
  Company Number: US-ALXN-A202311583AA

PATIENT
  Age: 68 Year
  Sex: Female

DRUGS (1)
  1. SOLIRIS [Suspect]
     Active Substance: ECULIZUMAB
     Indication: Neuromyelitis optica spectrum disorder
     Dosage: UNK UNK, Q2W
     Route: 042
     Dates: start: 20230818

REACTIONS (8)
  - Wound [Unknown]
  - Product temperature excursion issue [Unknown]
  - Hypoaesthesia [Unknown]
  - Dysstasia [Not Recovered/Not Resolved]
  - Movement disorder [Recovered/Resolved]
  - Back pain [Unknown]
  - Constipation [Not Recovered/Not Resolved]
  - Pain in extremity [Unknown]

NARRATIVE: CASE EVENT DATE: 20230903
